FAERS Safety Report 11241265 (Version 2)
Quarter: 2015Q3

REPORT INFORMATION
  Report Type: Spontaneous
  Country: FR (occurrence: FR)
  Receive Date: 20150706
  Receipt Date: 20150907
  Transmission Date: 20151125
  Serious: Yes (Life-Threatening)
  Sender: FDA-Public Use
  Company Number: FR-009507513-1507FRA001943

PATIENT
  Age: 66 Year
  Sex: Female

DRUGS (6)
  1. IBUPROFEN. [Suspect]
     Active Substance: IBUPROFEN
     Dosage: 4 TABLETS, ONCE
     Route: 048
     Dates: start: 20150427, end: 20150427
  2. TRIMEBUTINE [Suspect]
     Active Substance: TRIMEBUTINE
     Dosage: 24 TABLETS, ONCE
     Route: 048
     Dates: start: 20150427, end: 20150427
  3. JANUMET [Suspect]
     Active Substance: METFORMIN HYDROCHLORIDE\SITAGLIPTIN PHOSPHATE
     Dosage: 50 TABLETS, ONCE
     Route: 048
     Dates: start: 20150427, end: 20150427
  4. ATENOLOL. [Suspect]
     Active Substance: ATENOLOL
     Dosage: 15 TABLETS, ONCE
     Route: 048
     Dates: start: 20150427, end: 20150427
  5. ATARAX [Suspect]
     Active Substance: HYDROXYZINE\HYDROXYZINE HYDROCHLORIDE
     Dosage: 30 TABLETS, ONCE
     Route: 048
     Dates: start: 20150427, end: 20150427
  6. ACETAMINOPHEN. [Suspect]
     Active Substance: ACETAMINOPHEN
     Dosage: 16 G, ONCE
     Route: 048
     Dates: start: 20150427, end: 20150427

REACTIONS (3)
  - Cardiogenic shock [Recovered/Resolved]
  - Lactic acidosis [Recovered/Resolved]
  - Intentional overdose [Unknown]

NARRATIVE: CASE EVENT DATE: 20150427
